FAERS Safety Report 7407097-5 (Version None)
Quarter: 2011Q2

REPORT INFORMATION
  Report Type: 
  Country: None (occurrence: None)
  Receive Date: 20110411
  Receipt Date: 20110329
  Transmission Date: 20111010
  Serious: Yes (Hospitalization)
  Sender: FDA-Public Use
  Company Number: GB-BAYER-2011-027801

PATIENT
  Age: 60 Year
  Sex: Male

DRUGS (1)
  1. ASPRO CLEAR [Suspect]
     Indication: MYOCARDIAL ISCHAEMIA
     Dosage: 150 MG, QD

REACTIONS (1)
  - SMALL INTESTINAL OBSTRUCTION [None]
